FAERS Safety Report 10385791 (Version 1)
Quarter: 2014Q3

REPORT INFORMATION
  Report Type: Spontaneous
  Country: GB (occurrence: GB)
  Receive Date: 20140814
  Receipt Date: 20140814
  Transmission Date: 20150326
  Serious: Yes (Death)
  Sender: FDA-Public Use
  Company Number: GB-GE HEALTHCARE MEDICAL DIAGNOSTICS-OSCN-PR-1408L-0131

PATIENT
  Age: 67 Year
  Sex: Male

DRUGS (4)
  1. OMNISCAN [Suspect]
     Active Substance: GADODIAMIDE
     Indication: RENAL FAILURE CHRONIC
     Route: 065
     Dates: start: 200401, end: 200401
  2. OMNISCAN [Suspect]
     Active Substance: GADODIAMIDE
     Indication: AORTIC ANEURYSM
     Route: 065
     Dates: start: 200501, end: 200501
  3. OMNISCAN [Suspect]
     Active Substance: GADODIAMIDE
     Indication: DIAGNOSTIC PROCEDURE
     Route: 065
     Dates: start: 200510, end: 200510
  4. OMNISCAN [Suspect]
     Active Substance: GADODIAMIDE
     Indication: CARDIAC IMAGING PROCEDURE

REACTIONS (1)
  - Nephrogenic systemic fibrosis [Fatal]

NARRATIVE: CASE EVENT DATE: 201103
